FAERS Safety Report 6984230-0 (Version None)
Quarter: 2010Q3

REPORT INFORMATION
  Report Type: 
  Country: None (occurrence: None)
  Receive Date: 20100915
  Receipt Date: 20100908
  Transmission Date: 20110219
  Serious: No
  Sender: FDA-Public Use
  Company Number: US-BIOGENIDEC-2010BI016245

PATIENT
  Age: 52 Year
  Sex: Female

DRUGS (2)
  1. TYSABRI [Suspect]
     Indication: MULTIPLE SCLEROSIS
     Route: 042
     Dates: start: 20080102, end: 20090508
  2. TYSABRI [Suspect]
     Route: 042
     Dates: start: 20090807

REACTIONS (5)
  - FATIGUE [None]
  - LOSS OF CONTROL OF LEGS [None]
  - MULTIPLE SCLEROSIS RELAPSE [None]
  - NUCLEAR MAGNETIC RESONANCE IMAGING ABNORMAL [None]
  - SOMNOLENCE [None]
